FAERS Safety Report 7821939-0 (Version None)
Quarter: 2011Q4

REPORT INFORMATION
  Report Type: 
  Country: None (occurrence: None)
  Receive Date: 20111018
  Receipt Date: 20110202
  Transmission Date: 20120403
  Serious: No
  Sender: FDA-Public Use
  Company Number: US-ASTRAZENECA-2010SE59948

PATIENT
  Age: 64 Year
  Sex: Male
  Weight: 95.7 kg

DRUGS (5)
  1. NITROLINGUAL [Concomitant]
     Indication: CARDIAC FAILURE CONGESTIVE
  2. PROAIR HFA [Concomitant]
     Indication: CHRONIC OBSTRUCTIVE PULMONARY DISEASE
  3. LASIX [Concomitant]
     Indication: CARDIAC FAILURE CONGESTIVE
  4. SYMBICORT [Suspect]
     Indication: CHRONIC OBSTRUCTIVE PULMONARY DISEASE
     Dosage: 320 MCG BID
     Route: 055
     Dates: start: 20100801
  5. MOBIC [Concomitant]
     Indication: ARTHRITIS

REACTIONS (3)
  - DRUG DOSE OMISSION [None]
  - CARDIAC FAILURE CONGESTIVE [None]
  - DYSPNOEA [None]
